FAERS Safety Report 6097345-9 (Version None)
Quarter: 2009Q1

REPORT INFORMATION
  Report Type: 
  Country: None (occurrence: None)
  Receive Date: 20090226
  Receipt Date: 20090226
  Transmission Date: 20090719
  Serious: Yes (Other)
  Sender: FDA-Public Use
  Company Number: None

PATIENT
  Age: 25 Year
  Sex: Female
  Weight: 49.8957 kg

DRUGS (1)
  1. AVELOX [Suspect]
     Indication: BRONCHITIS
     Dosage: 1 TABLET EVERY DAY PO
     Route: 048
     Dates: start: 20090224, end: 20090224

REACTIONS (4)
  - ANXIETY [None]
  - FEAR [None]
  - FEELING HOT [None]
  - PARANOIA [None]
